FAERS Safety Report 6647463-9 (Version None)
Quarter: 2010Q1

REPORT INFORMATION
  Report Type: 
  Country: None (occurrence: None)
  Receive Date: 20100323
  Receipt Date: 20100323
  Transmission Date: 20100710
  Serious: Yes (Hospitalization)
  Sender: FDA-Public Use
  Company Number: None

PATIENT
  Sex: Male
  Weight: 81.1939 kg

DRUGS (2)
  1. CLINDAMYCIN [Suspect]
     Indication: BUNION OPERATION
     Dosage: 1 TABLET 3X A DAY
     Dates: start: 20100304, end: 20100318
  2. CLINDAMYCIN [Suspect]
     Indication: GOUT
     Dosage: 1 TABLET 3X A DAY
     Dates: start: 20100304, end: 20100318

REACTIONS (2)
  - CLOSTRIDIUM DIFFICILE COLITIS [None]
  - DEHYDRATION [None]
